FAERS Safety Report 18858421 (Version 1)
Quarter: 2021Q1

REPORT INFORMATION
  Report Type: Spontaneous
  Country: US (occurrence: US)
  Receive Date: 20210208
  Receipt Date: 20210208
  Transmission Date: 20210420
  Serious: No
  Sender: FDA-Public Use
  Company Number: US-ASTRAZENECA-2021A007782

PATIENT
  Sex: Male
  Weight: 79.4 kg

DRUGS (1)
  1. BYDUREON BCISE [Suspect]
     Active Substance: EXENATIDE
     Indication: TYPE 2 DIABETES MELLITUS
     Route: 058
     Dates: start: 201410

REACTIONS (5)
  - Injection site haemorrhage [Unknown]
  - Device leakage [Unknown]
  - Blood disorder [Unknown]
  - Injection site pain [Unknown]
  - Product dose omission issue [Unknown]
